FAERS Safety Report 5614017-2 (Version None)
Quarter: 2008Q1

REPORT INFORMATION
  Report Type: 
  Country: None (occurrence: None)
  Receive Date: 20080129
  Receipt Date: 20080114
  Transmission Date: 20080703
  Serious: Yes (Other)
  Sender: FDA-Public Use
  Company Number: CERZ-1000032

PATIENT
  Sex: Male
  Weight: 3.1 kg

DRUGS (1)
  1. CEREZYME [Suspect]
     Indication: DRUG EXPOSURE DURING PREGNANCY
     Dosage: INTRA-UTERINE
     Route: 015

REACTIONS (5)
  - APGAR SCORE LOW [None]
  - CAESAREAN SECTION [None]
  - DRUG EXPOSURE DURING PREGNANCY [None]
  - NEONATAL DISORDER [None]
  - PREMATURE BABY [None]
